FAERS Safety Report 5230531-6 (Version None)
Quarter: 2007Q1

REPORT INFORMATION
  Report Type: 
  Country: None (occurrence: None)
  Receive Date: 20070206
  Receipt Date: 20070201
  Transmission Date: 20070707
  Serious: Yes (Hospitalization)
  Sender: FDA-Public Use
  Company Number: US-GLAXOSMITHKLINE-A0637990A

PATIENT
  Sex: Female

DRUGS (3)
  1. WELLBUTRIN XL [Suspect]
     Dosage: 150MG PER DAY
     Route: 048
  2. XANAX [Concomitant]
  3. PEPCID [Concomitant]

REACTIONS (6)
  - BLADDER OPERATION [None]
  - DRUG INEFFECTIVE [None]
  - DYSKINESIA [None]
  - HERPES ZOSTER [None]
  - INSOMNIA [None]
  - POLLAKIURIA [None]
